FAERS Safety Report 25335570 (Version 3)
Quarter: 2025Q3

REPORT INFORMATION
  Report Type: Report from Study
  Country: US (occurrence: US)
  Receive Date: 20250520
  Receipt Date: 20250819
  Transmission Date: 20251021
  Serious: Yes (Other)
  Sender: TRAVERE THERAPEUTICS
  Company Number: US-TRAVERE-2025TVT00734

PATIENT
  Age: 30 Year
  Sex: Female

DRUGS (10)
  1. FILSPARI [Suspect]
     Active Substance: SPARSENTAN
     Indication: IgA nephropathy
     Route: 048
     Dates: start: 20250328
  2. NIFEDIPINE [Concomitant]
     Active Substance: NIFEDIPINE
  3. LABETALOL [Concomitant]
     Active Substance: LABETALOL
  4. FARXIGA [Concomitant]
     Active Substance: DAPAGLIFLOZIN PROPANEDIOL
  5. NEXIUM [Concomitant]
     Active Substance: ESOMEPRAZOLE MAGNESIUM
  6. JENCYCLA [Concomitant]
     Active Substance: NORETHINDRONE
  7. ALBUTEROL [Concomitant]
     Active Substance: ALBUTEROL
  8. OMEPRAZOLE [Concomitant]
     Active Substance: OMEPRAZOLE
  9. VALSARTAN [Concomitant]
     Active Substance: VALSARTAN
  10. SODIUM BICARBONATE [Concomitant]
     Active Substance: SODIUM BICARBONATE

REACTIONS (5)
  - Pharyngitis [Unknown]
  - Renal injury [Unknown]
  - Urine protein/creatinine ratio increased [Unknown]
  - Urine analysis abnormal [None]
  - Contraindicated product administered [Unknown]

NARRATIVE: CASE EVENT DATE: 20250410
